FAERS Safety Report 11622643 (Version 1)
Quarter: 2015Q4

REPORT INFORMATION
  Report Type: Spontaneous
  Country: US (occurrence: US)
  Receive Date: 20151013
  Receipt Date: 20151013
  Transmission Date: 20160304
  Serious: No
  Sender: FDA-Public Use
  Company Number: US-JNJFOC-20150207669

PATIENT
  Age: 60 Year
  Sex: Male
  Weight: 97.52 kg

DRUGS (1)
  1. TYLENOL EXTRA STRENGTH [Suspect]
     Active Substance: ACETAMINOPHEN
     Indication: PAIN
     Dosage: 2 CAPLETS IN THE MORNING AND 2 CAPLETS IN THE EVENING
     Route: 048

REACTIONS (2)
  - Incorrect drug administration duration [Unknown]
  - Therapeutic response decreased [Unknown]
